FAERS Safety Report 22225634 (Version 1)
Quarter: 2023Q2

REPORT INFORMATION
  Report Type: Spontaneous
  Country: US (occurrence: US)
  Receive Date: 20230418
  Receipt Date: 20230418
  Transmission Date: 20230722
  Serious: No
  Sender: FDA-Public Use
  Company Number: US-SA-SAC20230413000778

PATIENT
  Sex: Female

DRUGS (1)
  1. DUPIXENT [Suspect]
     Active Substance: DUPILUMAB
     Indication: Eczema
     Dosage: 300 MG, QOW
     Route: 058
     Dates: start: 20220809

REACTIONS (5)
  - Rhinorrhoea [Unknown]
  - Photosensitivity reaction [Unknown]
  - Sunburn [Unknown]
  - Rash [Unknown]
  - Nasopharyngitis [Unknown]
